FAERS Safety Report 14133128 (Version 1)
Quarter: 2017Q4

REPORT INFORMATION
  Report Type: Spontaneous
  Country: GB (occurrence: GB)
  Receive Date: 20171026
  Receipt Date: 20171026
  Transmission Date: 20180321
  Serious: Yes (Other)
  Sender: FDA-Public Use
  Company Number: GB-ASTRAZENECA-2017SF08207

PATIENT
  Age: 64 Year
  Sex: Female
  Weight: 115.5 kg

DRUGS (13)
  1. LINAGLIPTIN [Concomitant]
     Active Substance: LINAGLIPTIN
     Dosage: 5 EVERY DAY
     Dates: start: 20170711
  2. LANSOPRAZOLE. [Concomitant]
     Active Substance: LANSOPRAZOLE
     Dosage: 15, EVERYDAY
     Dates: start: 20170711
  3. METFORMIN [Concomitant]
     Active Substance: METFORMIN HYDROCHLORIDE
     Dates: start: 20170711
  4. RISEDRONATE SODIUM. [Concomitant]
     Active Substance: RISEDRONATE SODIUM
     Dates: start: 20170711
  5. DAPAGLIFLOZIN. [Suspect]
     Active Substance: DAPAGLIFLOZIN
     Dosage: 10.0MG UNKNOWN
     Route: 048
  6. AZATHIOPRINE. [Concomitant]
     Active Substance: AZATHIOPRINE
     Dosage: 50.0MG UNKNOWN
     Dates: start: 20170711
  7. COCODAMOL [Concomitant]
     Active Substance: ACETAMINOPHEN\CODEINE PHOSPHATE
     Dosage: 30/500MG, ONE OR TWO TO BE TAKEN UP TO FOUR TIMES A DAY WHEN REQUIRED
     Dates: start: 20170711
  8. FOLIC ACID. [Concomitant]
     Active Substance: FOLIC ACID
     Dosage: RECHECK LEVELS IN 3 MONTHS
     Dates: start: 20171010
  9. LISINOPRIL. [Concomitant]
     Active Substance: LISINOPRIL
     Dates: start: 20170711
  10. MEBEVERINE [Concomitant]
     Active Substance: MEBEVERINE
     Dosage: 15 MINUTES BEFORE MEALS
     Dates: start: 20170711
  11. VISCOTEARS [Concomitant]
     Active Substance: CARBOMER
     Dosage: 3-4 TIMES/DAY
     Dates: start: 20170711
  12. LEVOTHYROXINE. [Concomitant]
     Active Substance: LEVOTHYROXINE
     Dosage: 100UG + 50UG
     Dates: start: 20170711
  13. CALCEOS [Concomitant]
     Active Substance: CALCIUM CARBONATE\CHOLECALCIFEROL
     Dosage: 500MG/400IU
     Dates: start: 20170711

REACTIONS (2)
  - Candida infection [Recovered/Resolved]
  - Cystitis [Unknown]
